FAERS Safety Report 16468584 (Version 1)
Quarter: 2019Q2

REPORT INFORMATION
  Report Type: Spontaneous
  Country: US (occurrence: US)
  Receive Date: 20190624
  Receipt Date: 20190624
  Transmission Date: 20190711
  Serious: Yes (Other)
  Sender: FDA-Public Use
  Company Number: US-HERITAGE PHARMACEUTICALS-2019HTG00287

PATIENT
  Age: 30 Year
  Sex: Female

DRUGS (2)
  1. DESIPRAMINE HYDROCHLORIDE. [Suspect]
     Active Substance: DESIPRAMINE HYDROCHLORIDE
     Dosage: UNKNOWN AMOUNT
     Route: 048
  2. ZOLPIDEM [Concomitant]
     Active Substance: ZOLPIDEM\ZOLPIDEM TARTRATE
     Dosage: UNKNOWN AMOUNT
     Route: 065

REACTIONS (5)
  - Cardiotoxicity [Recovered/Resolved]
  - Hypernatraemia [Recovered/Resolved]
  - Electrocardiogram QRS complex prolonged [Recovered/Resolved]
  - Alkalosis [Recovered/Resolved]
  - Hypotension [Recovered/Resolved]
